FAERS Safety Report 5917706-5 (Version None)
Quarter: 2008Q4

REPORT INFORMATION
  Report Type: 
  Country: None (occurrence: None)
  Receive Date: 20081009
  Receipt Date: 20081006
  Transmission Date: 20090506
  Serious: Yes (Other)
  Sender: FDA-Public Use
  Company Number: ADE2008-0328

PATIENT
  Age: 61 Year
  Sex: Male
  Weight: 65 kg

DRUGS (2)
  1. ALENDRONATE SODIUM [Suspect]
     Indication: OSTEOPOROSIS
     Dosage: PO
     Route: 048
  2. PREDNISOLONE [Concomitant]

REACTIONS (5)
  - FOCAL SEGMENTAL GLOMERULOSCLEROSIS [None]
  - HAEMODIALYSIS [None]
  - HYPOVOLAEMIA [None]
  - NEPHROTIC SYNDROME [None]
  - RENAL FAILURE ACUTE [None]
